FAERS Safety Report 7465076-6 (Version None)
Quarter: 2011Q2

REPORT INFORMATION
  Report Type: 
  Country: None (occurrence: None)
  Receive Date: 20110509
  Receipt Date: 20110502
  Transmission Date: 20111010
  Serious: Yes (Hospitalization, Other)
  Sender: FDA-Public Use
  Company Number: US-ABBOTT-11P-163-0715796-00

PATIENT
  Sex: Female
  Weight: 49.94 kg

DRUGS (12)
  1. IRON [Concomitant]
     Indication: MINERAL SUPPLEMENTATION
  2. HUMIRA [Suspect]
     Indication: CROHN'S DISEASE
     Dosage: 160 MG LOADING DOSE
     Dates: start: 20110223, end: 20110223
  3. HUMIRA [Suspect]
     Dates: start: 20110326, end: 20110425
  4. CELEXA [Concomitant]
     Indication: DEPRESSION
     Dosage: 40 MG DAILY
  5. BIRTH CONTROL [Concomitant]
     Indication: CONTRACEPTION
  6. HUMIRA [Suspect]
     Route: 058
     Dates: start: 20110425
  7. ASACOL [Concomitant]
     Indication: CROHN'S DISEASE
     Dosage: 3 TABLETS BID
  8. LOESTRIN 1.5/30 [Concomitant]
     Indication: CONTRACEPTION
     Route: 048
  9. UNKNOWN ANXIETY MEDICATION [Concomitant]
     Indication: PRODUCT USED FOR UNKNOWN INDICATION
  10. HUMIRA [Suspect]
     Dates: end: 20110318
  11. UNKNOWN VITAMINS [Concomitant]
     Indication: VITAMIN SUPPLEMENTATION
  12. LEVOTHYROXINE SODIUM [Concomitant]
     Indication: PRODUCT USED FOR UNKNOWN INDICATION
     Dates: end: 20110301

REACTIONS (7)
  - DEPRESSION [None]
  - THYROID CANCER [None]
  - THYROID NEOPLASM [None]
  - DRUG INEFFECTIVE [None]
  - PAIN [None]
  - CROHN'S DISEASE [None]
  - HAEMORRHAGE [None]
